FAERS Safety Report 10150227 (Version 3)
Quarter: 2014Q2

REPORT INFORMATION
  Report Type: Spontaneous
  Country: JP (occurrence: JP)
  Receive Date: 20140502
  Receipt Date: 20140611
  Transmission Date: 20141212
  Serious: Yes (Death)
  Sender: FDA-Public Use
  Company Number: JP-JNJFOC-20140421099

PATIENT
  Age: 65 Year
  Sex: Male
  Weight: 53 kg

DRUGS (7)
  1. XARELTO [Suspect]
     Indication: ANTICOAGULANT THERAPY
     Route: 048
     Dates: start: 20140325, end: 20140408
  2. XARELTO [Suspect]
     Indication: CEREBROVASCULAR ACCIDENT PROPHYLAXIS
     Route: 048
     Dates: start: 20140325, end: 20140408
  3. XARELTO [Suspect]
     Indication: ATRIAL FIBRILLATION
     Route: 048
     Dates: start: 20140325, end: 20140408
  4. JANUVIA [Suspect]
     Indication: DIABETES MELLITUS
     Route: 048
  5. WARFARIN [Suspect]
     Indication: ATRIAL FIBRILLATION
     Route: 048
  6. HERBESSER R [Suspect]
     Indication: ATRIAL FIBRILLATION
     Route: 048
  7. MAINTATE [Concomitant]
     Indication: PROPHYLAXIS
     Route: 048
     Dates: start: 20140325, end: 20140408

REACTIONS (1)
  - Interstitial lung disease [Fatal]
